FAERS Safety Report 19812547 (Version 2)
Quarter: 2021Q3

REPORT INFORMATION
  Report Type: Spontaneous
  Country: CN (occurrence: CN)
  Receive Date: 20210910
  Receipt Date: 20210914
  Transmission Date: 20211014
  Serious: Yes (Other)
  Sender: FDA-Public Use
  Company Number: CN-009507513-2109CHN001151

PATIENT
  Age: 71 Year
  Sex: Male
  Weight: 65 kg

DRUGS (4)
  1. HUI BANG LING [Suspect]
     Active Substance: VORICONAZOLE
     Dosage: 280 MG, Q12H (TWICE A DAY)
     Route: 041
     Dates: start: 20210813, end: 20210813
  2. TIENAM [Concomitant]
     Active Substance: CILASTATIN SODIUM\IMIPENEM
     Dosage: 500 MG, Q6H (ALSO REPORTED AS FOUR TIMES A DAY)
     Route: 041
     Dates: start: 20210815, end: 20210819
  3. TIENAM [Suspect]
     Active Substance: CILASTATIN SODIUM\IMIPENEM
     Dosage: 1000 MG, Q8H (ALSO REPORTED AS THREE TIMES A DAY)
     Route: 041
     Dates: start: 20210812, end: 20210814
  4. HUI BANG LING [Suspect]
     Active Substance: VORICONAZOLE
     Dosage: 430 MG, Q12H (TWICE A DAY)
     Route: 041
     Dates: start: 20210812, end: 20210812

REACTIONS (7)
  - Disorganised speech [Unknown]
  - Agitation [Unknown]
  - Muscle twitching [Unknown]
  - Nervous system disorder [Recovering/Resolving]
  - Eye movement disorder [Unknown]
  - Irritability [Unknown]
  - Initial insomnia [Unknown]

NARRATIVE: CASE EVENT DATE: 20210813
